FAERS Safety Report 5939897-2 (Version None)
Quarter: 2008Q4

REPORT INFORMATION
  Report Type: 
  Country: None (occurrence: None)
  Receive Date: 20081104
  Receipt Date: 20081027
  Transmission Date: 20090506
  Serious: Yes (Hospitalization)
  Sender: FDA-Public Use
  Company Number: US-ALLERGAN-0808282US

PATIENT
  Age: 52 Year
  Sex: Male

DRUGS (9)
  1. ALPHAGAN P [Suspect]
     Indication: OCULAR HYPERTENSION
     Dosage: 1 GTT, BID
     Route: 047
     Dates: start: 20080603, end: 20080704
  2. ALPHAGAN P [Suspect]
     Indication: GLAUCOMA
  3. IMDUR [Suspect]
     Indication: CHEST PAIN
     Dosage: 30 MG, SINGLE
     Route: 048
     Dates: start: 20080705, end: 20080705
  4. ZETIA [Concomitant]
     Indication: BLOOD CHOLESTEROL
     Dosage: 10 MG, QD
     Route: 048
  5. TRAVATAN [Concomitant]
     Indication: OCULAR HYPERTENSION
     Dosage: 1 GTT, BID
     Route: 047
  6. FISH OIL [Concomitant]
     Route: 048
  7. BETA CAROTENE [Concomitant]
     Route: 048
  8. COQ10 [Concomitant]
     Route: 048
  9. ASPIRIN [Concomitant]
     Route: 048

REACTIONS (5)
  - ANGINA PECTORIS [None]
  - BLOOD PRESSURE DECREASED [None]
  - BLOOD PRESSURE INCREASED [None]
  - FATIGUE [None]
  - HEADACHE [None]
